FAERS Safety Report 19292280 (Version 1)
Quarter: 2021Q2

REPORT INFORMATION
  Report Type: Spontaneous
  Country: US (occurrence: US)
  Receive Date: 20210524
  Receipt Date: 20210524
  Transmission Date: 20210717
  Serious: Yes (Other)
  Sender: FDA-Public Use
  Company Number: US-SA-2021SA166969

PATIENT
  Age: 55 Year
  Sex: Female

DRUGS (7)
  1. KEVZARA [Suspect]
     Active Substance: SARILUMAB
     Indication: RHEUMATOID ARTHRITIS
     Route: 058
     Dates: start: 20210330, end: 202104
  2. ENBREL [Concomitant]
     Active Substance: ETANERCEPT
     Indication: RHEUMATOID ARTHRITIS
     Dosage: UNK
     Dates: start: 2000
  3. ORENCIA [Concomitant]
     Active Substance: ABATACEPT
  4. HUMIRA [Concomitant]
     Active Substance: ADALIMUMAB
  5. CIMZIA [Concomitant]
     Active Substance: CERTOLIZUMAB PEGOL
     Indication: RHEUMATOID ARTHRITIS
  6. METHOTREXATE. [Concomitant]
     Active Substance: METHOTREXATE
     Indication: RHEUMATOID ARTHRITIS
     Dosage: UNK
     Dates: start: 2000
  7. RINVOQ [Concomitant]
     Active Substance: UPADACITINIB

REACTIONS (5)
  - Skin irritation [Unknown]
  - Fatigue [Unknown]
  - Rheumatoid arthritis [Unknown]
  - Dry skin [Unknown]
  - Respiratory disorder [Unknown]

NARRATIVE: CASE EVENT DATE: 202104
